FAERS Safety Report 18930144 (Version 8)
Quarter: 2022Q2

REPORT INFORMATION
  Report Type: Report from Study
  Country: CA (occurrence: CA)
  Receive Date: 20210223
  Receipt Date: 20220413
  Transmission Date: 20220721
  Serious: Yes (Hospitalization, Other)
  Sender: FDA-Public Use
  Company Number: CA-HLS-202107078

PATIENT
  Age: 68 Year
  Sex: Male

DRUGS (3)
  1. CLOZARIL [Suspect]
     Active Substance: CLOZAPINE
     Indication: Product used for unknown indication
     Route: 048
     Dates: start: 20030702
  2. CLOZARIL [Suspect]
     Active Substance: CLOZAPINE
     Indication: Product used for unknown indication
     Dosage: DOSE DECREASED TO 400MG
     Route: 048
     Dates: start: 20030702
  3. CLOZARIL [Suspect]
     Active Substance: CLOZAPINE
     Indication: Product used for unknown indication
     Dosage: UNKNOWN
     Route: 048
     Dates: start: 20030702

REACTIONS (4)
  - Neutropenia [Unknown]
  - Neoplasm malignant [Unknown]
  - COVID-19 [Unknown]
  - Leukopenia [Unknown]

NARRATIVE: CASE EVENT DATE: 20220307
